FAERS Safety Report 14778038 (Version 1)
Quarter: 2018Q2

REPORT INFORMATION
  Report Type: Spontaneous
  Country: ES (occurrence: ES)
  Receive Date: 20180419
  Receipt Date: 20180419
  Transmission Date: 20180711
  Serious: Yes (Other)
  Sender: FDA-Public Use
  Company Number: ES-MERCK KGAA-2046048

PATIENT
  Age: 78 Year
  Sex: Female

DRUGS (11)
  1. VENLAFAXINE (150 MILLIGRAM) [Concomitant]
  2. OMEPRAZOLE. [Concomitant]
     Active Substance: OMEPRAZOLE
  3. ARCOXIA [Concomitant]
     Active Substance: ETORICOXIB
  4. NOVOTHYROX [Suspect]
     Active Substance: LEVOTHYROXINE SODIUM
     Indication: PRODUCT USED FOR UNKNOWN INDICATION
     Dates: start: 20110304, end: 2016
  5. TRAMADOL. [Concomitant]
     Active Substance: TRAMADOL
  6. AAS [Concomitant]
     Active Substance: ASPIRIN
  7. HYDROCHLOROTHIAZIDE. [Suspect]
     Active Substance: HYDROCHLOROTHIAZIDE
     Dates: start: 20110304
  8. NOVOTHYROX [Suspect]
     Active Substance: LEVOTHYROXINE SODIUM
     Dates: start: 2016
  9. SIMVASTATINE [Concomitant]
     Active Substance: SIMVASTATIN
  10. DIAZEPAM (5 MILLIGRAM) [Concomitant]
  11. LIMOVAN [Concomitant]

REACTIONS (16)
  - Fall [None]
  - Eye swelling [None]
  - Infarction [None]
  - Erythema [None]
  - Fatigue [None]
  - Feeling hot [None]
  - Pulmonary thrombosis [None]
  - Osteoarthritis [None]
  - Back pain [None]
  - Muscular weakness [None]
  - Head discomfort [None]
  - Hyperhidrosis [None]
  - Sleep disorder [None]
  - Depressed mood [None]
  - Osteoporosis [None]
  - Weight increased [None]

NARRATIVE: CASE EVENT DATE: 2016
